FAERS Safety Report 4724137-2 (Version None)
Quarter: 2005Q3

REPORT INFORMATION
  Report Type: 
  Country: None (occurrence: None)
  Receive Date: 20050722
  Receipt Date: 20050712
  Transmission Date: 20060218
  Serious: Yes (Hospitalization)
  Sender: FDA-Public Use
  Company Number: 2005081351

PATIENT
  Age: 38 Year
  Sex: Female

DRUGS (4)
  1. SOLU-CORTEF [Suspect]
     Indication: ANAPHYLACTIC REACTION
     Dosage: 300 MG, INTRAVENOUS
     Route: 042
     Dates: start: 20050519, end: 20050501
  2. SOLU-CORTEF [Suspect]
     Indication: URTICARIA
     Dosage: 300 MG, INTRAVENOUS
     Route: 042
     Dates: start: 20050519, end: 20050501
  3. AMINOPHYLLIN [Concomitant]
  4. GLYPHAGEN C (AMINOACETIC ACID, CYSTEINE, GLYCYRRHIZIC ACID) [Concomitant]

REACTIONS (2)
  - ANAPHYLACTIC SHOCK [None]
  - BLOOD PRESSURE DECREASED [None]
